FAERS Safety Report 14906658 (Version 2)
Quarter: 2020Q2

REPORT INFORMATION
  Report Type: Spontaneous
  Country: US (occurrence: US)
  Receive Date: 20180517
  Receipt Date: 20200415
  Transmission Date: 20200713
  Serious: No
  Sender: FDA-Public Use
  Company Number: US-SA-2016SA205142

PATIENT
  Age: 71 Year
  Sex: Female

DRUGS (7)
  1. LANTUS SOLOSTAR [Suspect]
     Active Substance: INSULIN GLARGINE
     Dosage: 32 IU, QD
     Route: 051
  2. SOLOSTAR [Suspect]
     Active Substance: DEVICE
     Indication: TYPE 2 DIABETES MELLITUS
  3. LANTUS SOLOSTAR [Suspect]
     Active Substance: INSULIN GLARGINE
     Dosage: 32 IU, QD
     Route: 051
  4. LANTUS SOLOSTAR [Suspect]
     Active Substance: INSULIN GLARGINE
     Dosage: 40 IU, QD (EVERY EVENING)
  5. SOLOSTAR [Suspect]
     Active Substance: DEVICE
  6. SOLOSTAR [Suspect]
     Active Substance: DEVICE
  7. LANTUS SOLOSTAR [Suspect]
     Active Substance: INSULIN GLARGINE
     Indication: TYPE 2 DIABETES MELLITUS
     Dosage: 32 IU, QD
     Route: 051

REACTIONS (13)
  - Blood glucose increased [Unknown]
  - Insomnia [Unknown]
  - Fibromyalgia [Unknown]
  - Intentional product misuse [Unknown]
  - Blood glucose decreased [Unknown]
  - Migraine [Unknown]
  - Pain in extremity [Unknown]
  - Pain [Unknown]
  - Visual impairment [Unknown]
  - Memory impairment [Unknown]
  - Balance disorder [Unknown]
  - Injection site pain [Unknown]
  - Device issue [Unknown]

NARRATIVE: CASE EVENT DATE: 20170612
